FAERS Safety Report 7168293-8 (Version None)
Quarter: 2010Q4

REPORT INFORMATION
  Report Type: 
  Country: None (occurrence: None)
  Receive Date: 20101216
  Receipt Date: 20101209
  Transmission Date: 20110411
  Serious: Yes (Other)
  Sender: FDA-Public Use
  Company Number: GB-ABBOTT-10P-167-0690649-00

PATIENT
  Sex: Male

DRUGS (1)
  1. HUMIRA [Suspect]
     Indication: PRODUCT USED FOR UNKNOWN INDICATION
     Dates: end: 20100801

REACTIONS (6)
  - DEEP VEIN THROMBOSIS [None]
  - EXTRASYSTOLES [None]
  - MUSCLE SPASMS [None]
  - MUSCLE TWITCHING [None]
  - PULMONARY EMBOLISM [None]
  - TREMOR [None]
